FAERS Safety Report 15650264 (Version 1)
Quarter: 2018Q4

REPORT INFORMATION
  Report Type: Other
  Country: ES (occurrence: ES)
  Receive Date: 20181123
  Receipt Date: 20181123
  Transmission Date: 20190205
  Serious: Yes (Life-Threatening, Other)
  Sender: FDA-Public Use
  Company Number: ES-APOTEX-2018AP025003

PATIENT
  Sex: Male

DRUGS (1)
  1. LEVOFLOXACIN. [Suspect]
     Active Substance: LEVOFLOXACIN
     Indication: ANTIBIOTIC PROPHYLAXIS
     Dosage: DOSIS UNICA ; IN TOTAL ONE TOTAL
     Route: 048
     Dates: start: 20180409, end: 20180409

REACTIONS (3)
  - Choking sensation [Recovered/Resolved]
  - Enanthema [Recovered/Resolved]
  - Erythema [Recovered/Resolved]

NARRATIVE: CASE EVENT DATE: 20180410
